FAERS Safety Report 7911030-7 (Version None)
Quarter: 2011Q4

REPORT INFORMATION
  Report Type: 
  Country: None (occurrence: None)
  Receive Date: 20111114
  Receipt Date: 20111110
  Transmission Date: 20120403
  Serious: No
  Sender: FDA-Public Use
  Company Number: US-BIOGENIDEC-2011BI043020

PATIENT
  Age: 35 Year
  Sex: Female

DRUGS (2)
  1. TYSABRI [Suspect]
     Indication: MULTIPLE SCLEROSIS
     Route: 042
     Dates: start: 20111014
  2. TYSABRI [Suspect]
     Route: 042
     Dates: start: 20110607, end: 20110607

REACTIONS (3)
  - PNEUMONIA [None]
  - IMMUNE SYSTEM DISORDER [None]
  - HYPOAESTHESIA [None]
